FAERS Safety Report 9295168 (Version 3)
Quarter: 2013Q3

REPORT INFORMATION
  Report Type: Spontaneous
  Country: US (occurrence: US)
  Receive Date: 20130517
  Receipt Date: 20130809
  Transmission Date: 20140515
  Serious: Yes (Hospitalization)
  Sender: FDA-Public Use
  Company Number: US-ROCHE-775846

PATIENT
  Age: 15 Year
  Sex: Male
  Weight: 83.9 kg

DRUGS (4)
  1. ACCUTANE [Suspect]
     Indication: ACNE
     Route: 065
     Dates: start: 200003, end: 200007
  2. ACCUTANE [Suspect]
     Route: 065
     Dates: start: 200010, end: 200105
  3. ACCUTANE [Suspect]
     Route: 065
     Dates: start: 200201, end: 200207
  4. TETRACYCLINE [Concomitant]
     Indication: ACNE

REACTIONS (4)
  - Crohn^s disease [Unknown]
  - Small intestinal obstruction [Unknown]
  - Blood triglycerides increased [Unknown]
  - Lip dry [Unknown]
